FAERS Safety Report 22711786 (Version 3)
Quarter: 2025Q1

REPORT INFORMATION
  Report Type: Spontaneous
  Country: US (occurrence: US)
  Receive Date: 20230717
  Receipt Date: 20250123
  Transmission Date: 20250409
  Serious: Yes (Other)
  Sender: PFIZER
  Company Number: US-PFIZER INC-202300250034

PATIENT
  Age: 86 Year
  Sex: Female
  Weight: 58.06 kg

DRUGS (13)
  1. VYNDAMAX [Suspect]
     Active Substance: TAFAMIDIS
     Indication: Cardiac disorder
     Dosage: 61 MG, 1X/DAY (AT LUNCH TIME)
     Route: 048
     Dates: start: 202211
  2. VYNDAMAX [Suspect]
     Active Substance: TAFAMIDIS
     Indication: Amyloidosis
  3. VYNDAMAX [Suspect]
     Active Substance: TAFAMIDIS
     Indication: Acquired ATTR amyloidosis
  4. AMIODARONE HYDROCHLORIDE [Concomitant]
     Active Substance: AMIODARONE HYDROCHLORIDE
     Indication: Arrhythmia
     Dosage: ONE HALF TABLET DAILY
     Route: 048
     Dates: start: 2020
  5. AMIODARONE HYDROCHLORIDE [Concomitant]
     Active Substance: AMIODARONE HYDROCHLORIDE
     Indication: Atrial fibrillation
  6. AMLODIPINE BESYLATE [Concomitant]
     Active Substance: AMLODIPINE BESYLATE
     Dosage: 2.5 MG, 1X/DAY
     Route: 048
     Dates: start: 2021
  7. ELIQUIS [Concomitant]
     Active Substance: APIXABAN
     Indication: Atrial fibrillation
     Dosage: 2.5MG ONE TWICE A DAY; MORNING AND NIGHT
     Route: 048
     Dates: start: 2020
  8. LEVOTHYROXINE [Concomitant]
     Active Substance: LEVOTHYROXINE
     Dosage: 50 MG, 1X/DAY
     Route: 048
     Dates: start: 2021
  9. METOPROLOL TARTRATE [Concomitant]
     Active Substance: METOPROLOL TARTRATE
     Indication: Heart rate abnormal
     Dosage: 12.5 MG, 2X/DAY(ONE HALF TABLET TWICE A DAY)
     Route: 048
     Dates: start: 2020
  10. METOPROLOL TARTRATE [Concomitant]
     Active Substance: METOPROLOL TARTRATE
     Indication: Atrial fibrillation
  11. VITAMIN C [Concomitant]
     Active Substance: ASCORBIC ACID
     Indication: COVID-19
     Dosage: 282MG TWO CHEWYS A DAY
     Route: 048
  12. CHOLECALCIFEROL [Concomitant]
     Active Substance: CHOLECALCIFEROL
     Indication: COVID-19
     Dosage: 60MG TWO CHEWYS A DAY
     Route: 048
  13. ZINC [Concomitant]
     Active Substance: ZINC
     Indication: COVID-19
     Dosage: 25 MG, 1X/DAY (ONE CHEWY A DAY BY MOUTH)
     Route: 048

REACTIONS (3)
  - Blood pressure systolic increased [Unknown]
  - Cough [Unknown]
  - Visual impairment [Unknown]
